FAERS Safety Report 18896315 (Version 2)
Quarter: 2021Q1

REPORT INFORMATION
  Report Type: Spontaneous
  Country: IT (occurrence: IT)
  Receive Date: 20210215
  Receipt Date: 20210222
  Transmission Date: 20210420
  Serious: Yes (Hospitalization, Other)
  Sender: FDA-Public Use
  Company Number: IT-LUNDBECK-DKLU3028254

PATIENT
  Age: 50 Year
  Sex: Female

DRUGS (7)
  1. LORAZEPAM. [Suspect]
     Active Substance: LORAZEPAM
     Indication: DRUG ABUSE
     Route: 048
     Dates: start: 20210112, end: 20210112
  2. FRISIUM [Suspect]
     Active Substance: CLOBAZAM
     Indication: DRUG ABUSE
     Route: 048
     Dates: start: 20210112, end: 20210112
  3. OLANZAPINE. [Concomitant]
     Active Substance: OLANZAPINE
     Indication: PRODUCT USED FOR UNKNOWN INDICATION
     Route: 065
  4. ZONEGRAN [Concomitant]
     Active Substance: ZONISAMIDE
     Indication: PRODUCT USED FOR UNKNOWN INDICATION
     Route: 065
  5. ZONISAMIDE. [Suspect]
     Active Substance: ZONISAMIDE
     Indication: DRUG ABUSE
     Route: 048
     Dates: start: 20210112, end: 20210112
  6. EUTIROX [Concomitant]
     Active Substance: LEVOTHYROXINE SODIUM
     Indication: PRODUCT USED FOR UNKNOWN INDICATION
     Route: 065
  7. VIMPAT [Concomitant]
     Active Substance: LACOSAMIDE
     Indication: PRODUCT USED FOR UNKNOWN INDICATION
     Route: 065

REACTIONS (5)
  - Overdose [Unknown]
  - Sopor [Unknown]
  - Suicide attempt [Unknown]
  - Hypothermia [Unknown]
  - Drug abuse [Unknown]

NARRATIVE: CASE EVENT DATE: 20210112
